FAERS Safety Report 13672641 (Version 4)
Quarter: 2017Q3

REPORT INFORMATION
  Report Type: Report from Study
  Country: ZA (occurrence: ZA)
  Receive Date: 20170621
  Receipt Date: 20170911
  Transmission Date: 20171127
  Serious: Yes (Hospitalization, Other)
  Sender: FDA-Public Use
  Company Number: ZA-BRISTOL-MYERS SQUIBB COMPANY-BMS-2017-039969

PATIENT
  Age: 70 Year
  Sex: Female

DRUGS (1)
  1. ABATACEPT [Suspect]
     Active Substance: ABATACEPT
     Indication: RHEUMATOID ARTHRITIS
     Dosage: 125 MG, QWK
     Route: 058
     Dates: start: 201702

REACTIONS (4)
  - Muscle rupture [Unknown]
  - Ankle operation [Recovering/Resolving]
  - Drug ineffective [Recovered/Resolved]
  - Joint dislocation [Recovering/Resolving]

NARRATIVE: CASE EVENT DATE: 201702
